FAERS Safety Report 4866986-6 (Version None)
Quarter: 2005Q4

REPORT INFORMATION
  Report Type: 
  Country: None (occurrence: None)
  Receive Date: 20051227
  Receipt Date: 20050929
  Transmission Date: 20060501
  Serious: Yes (Hospitalization)
  Sender: FDA-Public Use
  Company Number: US-MERCK-0510USA00353

PATIENT
  Age: 47 Year
  Sex: Female
  Weight: 59 kg

DRUGS (9)
  1. VIOXX [Suspect]
     Indication: ARTHRITIS
     Route: 048
     Dates: start: 20000101, end: 20010801
  2. ZESTRIL [Concomitant]
     Route: 065
  3. PLAVIX [Concomitant]
     Route: 065
  4. ISORBID [Concomitant]
     Route: 065
  5. NIASPAN [Concomitant]
     Route: 065
  6. INDOCIN [Concomitant]
     Route: 065
  7. TEMAZEPAM [Concomitant]
     Route: 065
  8. ALPRAZOLAM [Concomitant]
     Route: 065
  9. [THERAPY UNSPECIFIED] [Concomitant]
     Route: 065

REACTIONS (20)
  - ASTHMA [None]
  - BACK DISORDER [None]
  - BACK INJURY [None]
  - CHEST PAIN [None]
  - CORONARY ARTERY DISEASE [None]
  - DEPRESSION [None]
  - DYSLIPIDAEMIA [None]
  - FLUID RETENTION [None]
  - GASTROOESOPHAGEAL REFLUX DISEASE [None]
  - HORMONE LEVEL ABNORMAL [None]
  - HYPERTENSIVE HEART DISEASE [None]
  - IRRITABLE BOWEL SYNDROME [None]
  - LIMB INJURY [None]
  - MALAISE [None]
  - MYOCARDIAL INFARCTION [None]
  - NECK INJURY [None]
  - POSTPERICARDIOTOMY SYNDROME [None]
  - SJOGREN'S SYNDROME [None]
  - TONGUE DISORDER [None]
  - WEIGHT INCREASED [None]
